FAERS Safety Report 21902485 (Version 1)
Quarter: 2023Q1

REPORT INFORMATION
  Report Type: Report from Study
  Country: US (occurrence: US)
  Receive Date: 20230124
  Receipt Date: 20230124
  Transmission Date: 20230418
  Serious: Yes (Other)
  Sender: FDA-Public Use
  Company Number: US-ABBVIE-4278643

PATIENT
  Sex: Female
  Weight: 67 kg

DRUGS (17)
  1. VENCLEXTA [Suspect]
     Active Substance: VENETOCLAX
     Indication: Acute myeloid leukaemia
     Dosage: TAKE 4 EVERY DAY
     Route: 048
  2. VENCLEXTA [Suspect]
     Active Substance: VENETOCLAX
     Indication: Acute myeloid leukaemia
     Route: 048
  3. VENCLEXTA [Suspect]
     Active Substance: VENETOCLAX
     Indication: Acute myeloid leukaemia
     Dosage: DOSE:400MG , QPM
     Route: 048
  4. ACYCLOVIR [Concomitant]
     Active Substance: ACYCLOVIR
     Indication: Product used for unknown indication
     Dosage: 1 TABS BID
     Route: 048
  5. SYNTHROID [Concomitant]
     Active Substance: LEVOTHYROXINE SODIUM
     Indication: Product used for unknown indication
     Route: 048
  6. PROVENTIL HFA [Concomitant]
     Active Substance: ALBUTEROL SULFATE
     Indication: Product used for unknown indication
     Dosage: INHALATION AEROSOL-90MCG/INH
  7. MICAFUNGIN [Concomitant]
     Active Substance: MICAFUNGIN
     Indication: Product used for unknown indication
  8. HEPARIN SODIUM [Concomitant]
     Active Substance: HEPARIN SODIUM
     Indication: Product used for unknown indication
     Dosage: 100UINTS/ML
  9. DECITABINE [Concomitant]
     Active Substance: DECITABINE
     Indication: Product used for unknown indication
     Dates: start: 202103
  10. KLONOPIN [Concomitant]
     Active Substance: CLONAZEPAM
     Indication: Product used for unknown indication
     Dosage: TIME INTERVAL: 0.33333333 DAYS
     Route: 048
  11. DAPSONE [Concomitant]
     Active Substance: DAPSONE
     Indication: Product used for unknown indication
     Route: 048
  12. EPOGEN [Concomitant]
     Active Substance: ERYTHROPOIETIN
     Indication: Anaemia
  13. LOSARTAN [Concomitant]
     Active Substance: LOSARTAN
     Indication: Product used for unknown indication
  14. SODIUM CHLORIDE [Concomitant]
     Active Substance: SODIUM CHLORIDE
     Indication: Product used for unknown indication
     Dosage: 0.9% -500ML
     Route: 042
  15. IRON [Concomitant]
     Active Substance: IRON
     Indication: Anaemia
  16. MAGOX [Concomitant]
     Indication: Product used for unknown indication
  17. METOPROLOL SUCCINATE [Concomitant]
     Active Substance: METOPROLOL SUCCINATE
     Indication: Product used for unknown indication
     Dosage: TIME INTERVAL: 0.33333333 DAYS

REACTIONS (40)
  - Cerebrospinal fluid leakage [Unknown]
  - Pancytopenia [Unknown]
  - Dyslipidaemia [Unknown]
  - Peripheral swelling [Unknown]
  - Pain in extremity [Unknown]
  - Cataract nuclear [Unknown]
  - Vomiting [Unknown]
  - Tooth abscess [Unknown]
  - Diabetes mellitus [Unknown]
  - Palpitations [Unknown]
  - Paroxysmal perceptual alteration [Unknown]
  - Hypomagnesaemia [Unknown]
  - Osteoarthritis [Unknown]
  - Hypoxia [Unknown]
  - Diabetic neuropathy [Unknown]
  - Hypertension [Unknown]
  - Anaemia [Unknown]
  - Pain in extremity [Unknown]
  - Hypoaesthesia [Unknown]
  - Pain in extremity [Unknown]
  - Pain in extremity [Unknown]
  - Asthma [Unknown]
  - Skin mass [Unknown]
  - Diverticulitis [Unknown]
  - Arthralgia [Unknown]
  - Skin ulcer [Unknown]
  - Off label use [Unknown]
  - Leukopenia [Unknown]
  - Thrombocytosis [Unknown]
  - Hyperlipidaemia [Unknown]
  - Hypothyroidism [Unknown]
  - Paraesthesia [Unknown]
  - Dyspnoea [Unknown]
  - Chest pain [Unknown]
  - Depression [Unknown]
  - Gastrooesophageal reflux disease [Unknown]
  - Thrombocytopenia [Unknown]
  - Tendonitis [Unknown]
  - Oedema peripheral [Unknown]
  - Neutropenia [Unknown]
